FAERS Safety Report 21178347 (Version 1)
Quarter: 2022Q3

REPORT INFORMATION
  Report Type: Report from Study
  Country: US (occurrence: US)
  Receive Date: 20220805
  Receipt Date: 20220805
  Transmission Date: 20221027
  Serious: Yes (Other)
  Sender: FDA-Public Use
  Company Number: US-PFIZER INC-PV202200031093

PATIENT
  Age: 70 Year
  Sex: Male

DRUGS (6)
  1. AZITHROMYCIN [Suspect]
     Active Substance: AZITHROMYCIN
     Dosage: 500 MG, 1X/DAY
     Dates: start: 202205
  2. RIFABUTIN [Suspect]
     Active Substance: RIFABUTIN
     Dosage: 300 MG, 1X/DAY
     Dates: start: 202205
  3. NUZYRA [Suspect]
     Active Substance: OMADACYCLINE
     Indication: Infective tenosynovitis
     Dosage: 300 MG, 1X/DAY
     Route: 048
     Dates: start: 2022
  4. NUZYRA [Suspect]
     Active Substance: OMADACYCLINE
     Indication: Cutaneous tuberculosis
  5. AMIKACIN [Suspect]
     Active Substance: AMIKACIN
     Dosage: INFUSION
     Dates: start: 202205, end: 202207
  6. AMIKACIN [Suspect]
     Active Substance: AMIKACIN
     Dosage: 500 MG (INFUSION), 3X/WEEK
     Dates: start: 20220706

REACTIONS (1)
  - Joint swelling [Recovering/Resolving]

NARRATIVE: CASE EVENT DATE: 20220601
